FAERS Safety Report 19765070 (Version 1)
Quarter: 2021Q3

REPORT INFORMATION
  Report Type: Spontaneous
  Country: US (occurrence: US)
  Receive Date: 20210831
  Receipt Date: 20210831
  Transmission Date: 20211014
  Serious: No
  Sender: FDA-Public Use
  Company Number: US-BEH-2021135397

PATIENT
  Sex: Female

DRUGS (23)
  1. ZAFIRLUKAST. [Concomitant]
     Active Substance: ZAFIRLUKAST
  2. ATORVASTATIN [Concomitant]
     Active Substance: ATORVASTATIN
  3. VITAMINS NOS [Concomitant]
     Active Substance: VITAMINS
  4. MUCINEX [Concomitant]
     Active Substance: GUAIFENESIN
  5. MELATONIN [Concomitant]
     Active Substance: MELATONIN
  6. ZAFIRLUKAST. [Concomitant]
     Active Substance: ZAFIRLUKAST
  7. BREO ELLIPTA [Concomitant]
     Active Substance: FLUTICASONE FUROATE\VILANTEROL TRIFENATATE
  8. ABREVA [Concomitant]
     Active Substance: DOCOSANOL
  9. AMOXICILLIN. [Concomitant]
     Active Substance: AMOXICILLIN
  10. METFORMIN [Concomitant]
     Active Substance: METFORMIN HYDROCHLORIDE
  11. XOPENEX HFA [Concomitant]
     Active Substance: LEVALBUTEROL TARTRATE
  12. SUCRALFATE. [Concomitant]
     Active Substance: SUCRALFATE
  13. PREDNISOLONE ACETATE. [Concomitant]
     Active Substance: PREDNISOLONE ACETATE
  14. SIMVASTATIN. [Concomitant]
     Active Substance: SIMVASTATIN
  15. BYSTOLIC [Concomitant]
     Active Substance: NEBIVOLOL HYDROCHLORIDE
  16. HIZENTRA [Suspect]
     Active Substance: HUMAN IMMUNOGLOBULIN G
     Indication: BONE DISORDER
     Dosage: 14 GRAM, QW
     Route: 058
     Dates: start: 2018
  17. SERTRALINE HCL [Concomitant]
     Active Substance: SERTRALINE HYDROCHLORIDE
  18. CALCIUM [Concomitant]
     Active Substance: CALCIUM
  19. LEVOTHYROXIN [Concomitant]
     Active Substance: LEVOTHYROXINE
  20. ASPIR 81 [Concomitant]
     Active Substance: ASPIRIN
  21. PANTOPRAZOLE [Concomitant]
     Active Substance: PANTOPRAZOLE
  22. GABAPENTIN. [Concomitant]
     Active Substance: GABAPENTIN
  23. IRON [Concomitant]
     Active Substance: IRON

REACTIONS (5)
  - Cough [Unknown]
  - Illness [Unknown]
  - Respiratory syncytial virus infection [Unknown]
  - No adverse event [Unknown]
  - Product use in unapproved indication [Unknown]
